FAERS Safety Report 9742607 (Version 1)
Quarter: 2013Q4

REPORT INFORMATION
  Report Type: Spontaneous
  Country: US (occurrence: US)
  Receive Date: 20131210
  Receipt Date: 20131210
  Transmission Date: 20140711
  Serious: No
  Sender: FDA-Public Use
  Company Number: US-GILEAD-2009-0024644

PATIENT
  Sex: Female

DRUGS (8)
  1. LETAIRIS [Suspect]
     Indication: PULMONARY ARTERIAL HYPERTENSION
     Route: 048
     Dates: start: 20090805, end: 20090831
  2. DIAZEPAM [Concomitant]
  3. BENTYL [Concomitant]
  4. COZAAR [Concomitant]
  5. ATENOLOL [Concomitant]
  6. PREVACID [Concomitant]
  7. LIPITOR [Concomitant]
  8. METFORMIN [Concomitant]

REACTIONS (1)
  - Oedema peripheral [Not Recovered/Not Resolved]
